FAERS Safety Report 7186823-7 (Version None)
Quarter: 2010Q4

REPORT INFORMATION
  Report Type: 
  Country: None (occurrence: None)
  Receive Date: 20101222
  Receipt Date: 20101210
  Transmission Date: 20110411
  Serious: Yes (Congenital Anomaly)
  Sender: FDA-Public Use
  Company Number: A0901091A

PATIENT
  Sex: Male

DRUGS (7)
  1. PAXIL [Suspect]
     Indication: DEPRESSION
  2. COMBIVIR [Concomitant]
  3. ACYCLOVIR SODIUM [Concomitant]
  4. VIRACEPT [Concomitant]
  5. RANITIDINE [Concomitant]
  6. METOCLOPRAMIDE [Concomitant]
  7. VIDEX [Concomitant]

REACTIONS (9)
  - CARDIOMEGALY [None]
  - CEREBRAL VENTRICLE DILATATION [None]
  - CONVULSION [None]
  - DRUG EXPOSURE DURING PREGNANCY [None]
  - HEMIPARESIS [None]
  - INTRAVENTRICULAR HAEMORRHAGE [None]
  - MACROCEPHALY [None]
  - PATENT DUCTUS ARTERIOSUS [None]
  - PERIVENTRICULAR LEUKOMALACIA [None]
